FAERS Safety Report 5173528-7 (Version None)
Quarter: 2006Q4

REPORT INFORMATION
  Report Type: 
  Country: None (occurrence: None)
  Receive Date: 20061206
  Receipt Date: 20061204
  Transmission Date: 20070319
  Serious: Yes (Life-Threatening, Hospitalization, Other)
  Sender: FDA-Public Use
  Company Number: CLOF-10395

PATIENT
  Age: 26 Year
  Sex: Female

DRUGS (19)
  1. CLOFARABINE [Suspect]
     Indication: ACUTE LYMPHOCYTIC LEUKAEMIA
     Dosage: 60 MG QD X 3 IV
     Route: 042
     Dates: start: 20061109, end: 20061111
  2. CYCLOPHOSPHAMIDE [Suspect]
     Indication: ACUTE LYMPHOCYTIC LEUKAEMIA
     Dosage: 453 MG BID IV
     Route: 042
     Dates: start: 20061108, end: 20061111
  3. AMBISOME [Concomitant]
  4. AUGMENTIN '125' [Concomitant]
  5. BACTRIM DS [Concomitant]
  6. COMPAZINE [Concomitant]
  7. CYTARABINE [Concomitant]
  8. DEXAMETHASONE [Concomitant]
  9. KEPPRA [Concomitant]
  10. LO/OVRAL [Concomitant]
  11. MORPHINE SULFATE [Concomitant]
  12. NEXIUM [Concomitant]
  13. NYSTATIN [Concomitant]
  14. VALTREX [Concomitant]
  15. VANCOMYCIN [Concomitant]
  16. TYGACIL [Concomitant]
  17. MERREM [Concomitant]
  18. VORICONAZOLE [Concomitant]
  19. NEUPOGEN [Concomitant]

REACTIONS (10)
  - ALANINE AMINOTRANSFERASE INCREASED [None]
  - ASCITES [None]
  - CELLULITIS GANGRENOUS [None]
  - ERYTHEMA [None]
  - HYPERBILIRUBINAEMIA [None]
  - HYPOTENSION [None]
  - NEUTROPENIA [None]
  - PYREXIA [None]
  - SKIN NODULE [None]
  - VAGINAL CELLULITIS [None]
